FAERS Safety Report 5041785-3 (Version None)
Quarter: 2006Q2

REPORT INFORMATION
  Report Type: 
  Country: None (occurrence: None)
  Receive Date: 20060630
  Receipt Date: 20060621
  Transmission Date: 20061013
  Serious: Yes (Other)
  Sender: FDA-Public Use
  Company Number: 2006078832

PATIENT
  Age: 67 Year
  Sex: Male
  Weight: 79.3795 kg

DRUGS (1)
  1. VFEND [Suspect]
     Indication: BRONCHOPULMONARY ASPERGILLOSIS
     Dosage: 200 MG, INTRAVENOUS
     Route: 042
     Dates: start: 20060601, end: 20060601

REACTIONS (1)
  - THERAPY REGIMEN CHANGED [None]
